FAERS Safety Report 17223063 (Version 2)
Quarter: 2020Q1

REPORT INFORMATION
  Report Type: Spontaneous
  Country: US (occurrence: US)
  Receive Date: 20200102
  Receipt Date: 20200116
  Transmission Date: 20200409
  Serious: Yes (Disabling, Other)
  Sender: FDA-Public Use
  Company Number: US-SA-2019SA359318

PATIENT
  Sex: Female

DRUGS (1)
  1. ICY HOT MEDICATED, ADVANCED RELIEF [Suspect]
     Active Substance: MENTHOL
     Dosage: 2 UNK, QD

REACTIONS (2)
  - Disability [Unknown]
  - Expired product administered [Unknown]
